FAERS Safety Report 24366587 (Version 1)
Quarter: 2024Q3

REPORT INFORMATION
  Report Type: Spontaneous
  Country: CN (occurrence: CN)
  Receive Date: 20240926
  Receipt Date: 20240926
  Transmission Date: 20241016
  Serious: Yes (Hospitalization, Other)
  Sender: RANBAXY
  Company Number: CN-SUN PHARMACEUTICAL INDUSTRIES LTD-2024R1-469537

PATIENT
  Age: 4 Year
  Sex: Male
  Weight: 15 kg

DRUGS (2)
  1. SULFAMETHOXAZOLE\TRIMETHOPRIM [Suspect]
     Active Substance: SULFAMETHOXAZOLE\TRIMETHOPRIM
     Indication: Arthritis
     Dosage: UNK 25/5 MG/KG
     Route: 048
     Dates: end: 20220621
  2. RIFAMPIN [Concomitant]
     Active Substance: RIFAMPIN
     Indication: Arthritis
     Dosage: 15 MILLIGRAM/KILOGRAM, DAILY
     Route: 048

REACTIONS (1)
  - Disease recurrence [Unknown]
